FAERS Safety Report 7166147-4 (Version None)
Quarter: 2010Q4

REPORT INFORMATION
  Report Type: 
  Country: None (occurrence: None)
  Receive Date: 20101216
  Receipt Date: 20101208
  Transmission Date: 20110411
  Serious: Yes (Other)
  Sender: FDA-Public Use
  Company Number: AU-BAXTER-2010BH029689

PATIENT

DRUGS (1)
  1. TISSEEL VH [Suspect]
     Indication: SURGERY
     Route: 065

REACTIONS (1)
  - PNEUMOTHORAX [None]
